FAERS Safety Report 5092843-9 (Version None)
Quarter: 2006Q3

REPORT INFORMATION
  Report Type: 
  Country: None (occurrence: None)
  Receive Date: 20060727
  Receipt Date: 20060608
  Transmission Date: 20061208
  Serious: Yes (Other)
  Sender: FDA-Public Use
  Company Number: 2006073788

PATIENT
  Age: 72 Year
  Sex: Female

DRUGS (5)
  1. LYRICA [Suspect]
     Indication: NEURALGIA
     Dosage: 100 MG (100 MG,1 IN 1 D)
     Dates: start: 20060201
  2. KLONOPIN [Concomitant]
  3. TRAMADOL HCL [Concomitant]
  4. ATENOLOL [Concomitant]
  5. DARVOCET [Concomitant]

REACTIONS (4)
  - BLOOD PRESSURE INCREASED [None]
  - MYALGIA [None]
  - OEDEMA PERIPHERAL [None]
  - WEIGHT INCREASED [None]
